FAERS Safety Report 6831419-7 (Version None)
Quarter: 2010Q3

REPORT INFORMATION
  Report Type: 
  Country: None (occurrence: None)
  Receive Date: 20100712
  Receipt Date: 20100702
  Transmission Date: 20110219
  Serious: Yes (Other)
  Sender: FDA-Public Use
  Company Number: ZA-ABBOTT-10P-143-0655598-00

PATIENT
  Sex: Female

DRUGS (1)
  1. EPILIM [Suspect]
     Indication: BIPOLAR II DISORDER
     Dosage: 1000 MG DAILY

REACTIONS (4)
  - DYSGEUSIA [None]
  - HOT FLUSH [None]
  - PARAESTHESIA [None]
  - VIITH NERVE PARALYSIS [None]
